FAERS Safety Report 16036827 (Version 8)
Quarter: 2019Q4

REPORT INFORMATION
  Report Type: Report from Study
  Country: BE (occurrence: BE)
  Receive Date: 20190305
  Receipt Date: 20191210
  Transmission Date: 20200122
  Serious: Yes (Life-Threatening, Hospitalization)
  Sender: FDA-Public Use
  Company Number: BE-ROCHE-2223612

PATIENT
  Age: 65 Year
  Sex: Male
  Weight: 68.4 kg

DRUGS (51)
  1. OBINUTUZUMAB. [Suspect]
     Active Substance: OBINUTUZUMAB
     Indication: NON-HODGKIN^S LYMPHOMA
     Dosage: PRETREATMENT, EVERY 3 WEEKS AS PER PROTOCOL
     Route: 042
     Dates: start: 20181128
  2. ACICLOVIR [Concomitant]
     Active Substance: ACYCLOVIR
     Route: 065
     Dates: start: 20181207
  3. LASIX [Concomitant]
     Active Substance: FUROSEMIDE
     Route: 065
     Dates: start: 20190118
  4. TRAMADOL HYDROCHLORIDE. [Concomitant]
     Active Substance: TRAMADOL HYDROCHLORIDE
     Route: 065
     Dates: start: 20181123, end: 20181203
  5. TOCILIZUMAB. [Suspect]
     Active Substance: TOCILIZUMAB
     Route: 065
     Dates: start: 20190330, end: 20190330
  6. OXYGEN. [Concomitant]
     Active Substance: OXYGEN
     Dosage: 1 L CONTINOUSLY OVER 7.5H, 2L CONTINOUSLY OVER 15H, 2L CONTINOUSLY OVER 1H
     Route: 065
     Dates: start: 20190218, end: 20190218
  7. OXYGEN. [Concomitant]
     Active Substance: OXYGEN
     Dosage: 6L OVER 1H
     Route: 065
     Dates: start: 20181205, end: 20181205
  8. ACICLOVIR [Concomitant]
     Active Substance: ACYCLOVIR
     Route: 065
     Dates: start: 20181205, end: 20181205
  9. FASTURTEC [Concomitant]
     Active Substance: RASBURICASE
     Route: 065
     Dates: start: 20181205, end: 20181205
  10. FASTURTEC [Concomitant]
     Active Substance: RASBURICASE
     Route: 065
     Dates: start: 20190118, end: 20190121
  11. DENTIO [Concomitant]
     Route: 065
     Dates: start: 20190118
  12. CLEXANE [Concomitant]
     Active Substance: ENOXAPARIN SODIUM
     Route: 065
     Dates: start: 20181128, end: 20181128
  13. FASTURTEC [Concomitant]
     Active Substance: RASBURICASE
     Route: 065
     Dates: start: 20181129, end: 20181202
  14. RO7082859 (CD20/C3 T-CELL BISPECIFIC MAB) [Suspect]
     Active Substance: GLOFITAMAB
     Indication: NON-HODGKIN^S LYMPHOMA
     Dosage: LAST DOSE PRIOR TO SAE ON 05/DEC/2018?LAST DOSE PRIOR TO SECOND EPISODE OF CYTOKINE RELEASE SYNDROME
     Route: 042
     Dates: start: 20181205
  15. OXYGEN. [Concomitant]
     Active Substance: OXYGEN
     Dosage: 1 L CONTINOUSLY OVER 7.5H, 2L CONTINOUSLY OVER 15H, 2L CONTINOUSLY OVER 1H
     Route: 065
     Dates: start: 20190119, end: 20190119
  16. ALLOPURINOL. [Concomitant]
     Active Substance: ALLOPURINOL
     Route: 065
     Dates: start: 20181122, end: 20190117
  17. ALLOPURINOL. [Concomitant]
     Active Substance: ALLOPURINOL
     Route: 065
     Dates: start: 20181124, end: 20181128
  18. CLEXANE [Concomitant]
     Active Substance: ENOXAPARIN SODIUM
     Route: 065
     Dates: start: 20181122
  19. UREUM [Concomitant]
     Route: 065
     Dates: start: 20181123, end: 20181205
  20. UREUM [Concomitant]
     Route: 065
     Dates: start: 20181123, end: 20181205
  21. TOCILIZUMAB. [Suspect]
     Active Substance: TOCILIZUMAB
     Indication: CYTOKINE RELEASE SYNDROME
     Route: 065
     Dates: start: 20181205, end: 20181205
  22. OXYGEN. [Concomitant]
     Active Substance: OXYGEN
     Dosage: 1 L CONTINOUSLY OVER 7.5H, 2L CONTINOUSLY OVER 15H, 2L CONTINOUSLY OVER 1H
     Route: 065
     Dates: start: 20181128, end: 20181130
  23. OXYGEN. [Concomitant]
     Active Substance: OXYGEN
     Dosage: 1 L CONTINOUSLY OVER 7.5H, 2L CONTINOUSLY OVER 15H, 2L CONTINOUSLY OVER 1H
     Route: 065
     Dates: start: 20190306, end: 20190308
  24. OXYGEN. [Concomitant]
     Active Substance: OXYGEN
     Dosage: 6L OVER 1H
     Route: 065
     Dates: start: 20181205, end: 20181211
  25. ALLOPURINOL. [Concomitant]
     Active Substance: ALLOPURINOL
     Route: 065
     Dates: start: 20190121
  26. ALLOPURINOL. [Concomitant]
     Active Substance: ALLOPURINOL
     Route: 065
     Dates: start: 20190121
  27. CLEXANE [Concomitant]
     Active Substance: ENOXAPARIN SODIUM
     Route: 065
     Dates: start: 20181129, end: 20181201
  28. CLEXANE [Concomitant]
     Active Substance: ENOXAPARIN SODIUM
     Route: 065
     Dates: start: 20190417, end: 20190424
  29. FLUCONAZOLE. [Concomitant]
     Active Substance: FLUCONAZOLE
     Route: 065
     Dates: start: 20181123, end: 20181129
  30. LASIX [Concomitant]
     Active Substance: FUROSEMIDE
     Route: 065
     Dates: start: 20181213
  31. ALLOPURINOL. [Concomitant]
     Active Substance: ALLOPURINOL
     Route: 065
     Dates: start: 20181204, end: 20181205
  32. CLEXANE [Concomitant]
     Active Substance: ENOXAPARIN SODIUM
     Route: 065
     Dates: start: 20190509, end: 20190513
  33. LITICAN [ALIZAPRIDE HYDROCHLORIDE] [Concomitant]
     Route: 065
     Dates: start: 20181123, end: 20181204
  34. ACICLOVIR [Concomitant]
     Active Substance: ACYCLOVIR
     Route: 065
     Dates: start: 20181123, end: 20181129
  35. DENTIO [Concomitant]
     Route: 065
     Dates: start: 20190306, end: 20190311
  36. TRADONAL [Concomitant]
     Active Substance: TRAMADOL HYDROCHLORIDE
     Route: 065
     Dates: start: 20181123, end: 20181203
  37. TRADONAL [Concomitant]
     Active Substance: TRAMADOL HYDROCHLORIDE
     Route: 065
     Dates: start: 20190331, end: 20190420
  38. CLEXANE [Concomitant]
     Active Substance: ENOXAPARIN SODIUM
     Route: 065
     Dates: start: 20181124, end: 20181127
  39. LITICAN [ALIZAPRIDE HYDROCHLORIDE] [Concomitant]
     Route: 065
     Dates: start: 20181123, end: 20181204
  40. FLUCONAZOLE. [Concomitant]
     Active Substance: FLUCONAZOLE
     Route: 065
     Dates: start: 20181205, end: 20181205
  41. FLUCONAZOLE. [Concomitant]
     Active Substance: FLUCONAZOLE
     Route: 065
     Dates: start: 20181209
  42. BACTRIM [Concomitant]
     Active Substance: SULFAMETHOXAZOLE\TRIMETHOPRIM
     Dosage: 800/160 MG
     Route: 065
     Dates: start: 20181123, end: 20181127
  43. FRAXODI [Concomitant]
     Active Substance: NADROPARIN CALCIUM
     Route: 065
     Dates: start: 20190401
  44. ATROVENT [Concomitant]
     Active Substance: IPRATROPIUM BROMIDE
     Dosage: 1 AMPOULE
     Route: 065
     Dates: start: 20181128
  45. CLEXANE [Concomitant]
     Active Substance: ENOXAPARIN SODIUM
     Route: 065
     Dates: start: 20181204, end: 20181205
  46. CLEXANE [Concomitant]
     Active Substance: ENOXAPARIN SODIUM
     Route: 065
     Dates: start: 20181202, end: 20181202
  47. CLEXANE [Concomitant]
     Active Substance: ENOXAPARIN SODIUM
     Route: 065
     Dates: start: 20181228, end: 20190401
  48. FASTURTEC [Concomitant]
     Active Substance: RASBURICASE
     Route: 065
     Dates: start: 20181206, end: 20181209
  49. BACTRIM [Concomitant]
     Active Substance: SULFAMETHOXAZOLE\TRIMETHOPRIM
     Dosage: 800/160 MG
     Route: 065
     Dates: start: 20181211
  50. DENTIO [Concomitant]
     Route: 065
     Dates: start: 20190216, end: 20190219
  51. TRAMADOL HYDROCHLORIDE. [Concomitant]
     Active Substance: TRAMADOL HYDROCHLORIDE
     Route: 065
     Dates: start: 20190331

REACTIONS (3)
  - Cytokine release syndrome [Recovered/Resolved]
  - Infusion related reaction [Recovered/Resolved]
  - Cytokine release syndrome [Recovered/Resolved]

NARRATIVE: CASE EVENT DATE: 20181128
